FAERS Safety Report 23979640 (Version 2)
Quarter: 2024Q4

REPORT INFORMATION
  Report Type: Spontaneous
  Country: DE (occurrence: DE)
  Receive Date: 20240616
  Receipt Date: 20241117
  Transmission Date: 20250115
  Serious: Yes (Hospitalization, Other)
  Sender: AUROBINDO
  Company Number: DE-ROCHE-2851821

PATIENT
  Age: 61 Year
  Sex: Male
  Weight: 92 kg

DRUGS (42)
  1. PEMETREXED [Suspect]
     Active Substance: PEMETREXED
     Indication: Non-small cell lung cancer metastatic
     Dosage: 1000 MILLIGRAM, EVERY 3 WEEKS
     Route: 042
     Dates: start: 20210601
  2. ATEZOLIZUMAB [Suspect]
     Active Substance: ATEZOLIZUMAB
     Indication: Non-small cell lung cancer metastatic
     Dosage: UNK
     Route: 065
  3. ATEZOLIZUMAB [Suspect]
     Active Substance: ATEZOLIZUMAB
     Dosage: 200 MILLILITER, EVERY 3 WEEK
     Route: 042
     Dates: start: 20210601
  4. CARBOPLATIN [Suspect]
     Active Substance: CARBOPLATIN
     Indication: Non-small cell lung cancer metastatic
     Dosage: 610 MILLIGRAM, EVERY 3 WEEK
     Route: 042
     Dates: start: 20210601
  5. CISPLATIN [Suspect]
     Active Substance: CISPLATIN
     Indication: Non-small cell lung cancer metastatic
     Dosage: 610 MILLIGRAM, EVERY 3 WEEKS
     Route: 042
     Dates: start: 20210601
  6. PEMBROLIZUMAB [Suspect]
     Active Substance: PEMBROLIZUMAB
     Indication: Non-small cell lung cancer metastatic
     Dosage: START DATE OF MOST RECENT DOSE OF STUDY DRUG PRIOR TO AE/SAE: 22-JUN-2021
     Route: 042
     Dates: start: 20210601
  7. PEMBROLIZUMAB [Suspect]
     Active Substance: PEMBROLIZUMAB
     Dosage: UNK
     Route: 042
  8. PEMBROLIZUMAB [Suspect]
     Active Substance: PEMBROLIZUMAB
     Dosage: UNK
     Route: 042
  9. HYDROMORPHONE [Concomitant]
     Active Substance: HYDROMORPHONE
     Indication: Product used for unknown indication
     Dosage: 2.6 MILLIGRAM, 0.33 DAYS
     Route: 048
     Dates: start: 20210510
  10. POTASSIUM CHLORIDE [Concomitant]
     Active Substance: POTASSIUM CHLORIDE
     Indication: Hypokalaemia
     Dosage: UNK, AS NECESSARY
     Route: 042
     Dates: start: 20210702, end: 20210702
  11. POTASSIUM CHLORIDE [Concomitant]
     Active Substance: POTASSIUM CHLORIDE
     Dosage: UNK, AS NECESSARY
     Route: 042
     Dates: start: 20210703, end: 20210703
  12. POTASSIUM CHLORIDE [Concomitant]
     Active Substance: POTASSIUM CHLORIDE
     Dosage: UNK, AS NECESSARY
     Route: 042
     Dates: start: 20210705, end: 20210705
  13. POTASSIUM CHLORIDE [Concomitant]
     Active Substance: POTASSIUM CHLORIDE
     Dosage: UNK, AS NECESSARY
     Route: 042
     Dates: start: 20210706, end: 20210706
  14. POTASSIUM CHLORIDE [Concomitant]
     Active Substance: POTASSIUM CHLORIDE
     Dosage: UNK, AS NECESSARY
     Route: 065
     Dates: start: 20210709, end: 20210709
  15. POTASSIUM CHLORIDE [Concomitant]
     Active Substance: POTASSIUM CHLORIDE
     Dosage: UNK, AS NECESSARY
     Route: 042
     Dates: start: 20210709, end: 20210709
  16. FENTANYL [Concomitant]
     Active Substance: FENTANYL
     Indication: Pain
     Dosage: UNK
     Route: 048
     Dates: start: 20210510
  17. FENTANYL [Concomitant]
     Active Substance: FENTANYL
     Indication: Pain
     Dosage: 175 MICROGRAM, EVERY 3 DAYS
     Route: 062
     Dates: start: 202102
  18. HUMAN RED BLOOD CELL [Concomitant]
     Active Substance: HUMAN RED BLOOD CELL
     Indication: Anaemia
     Dosage: MEDICATION DOSE 1 OTHER
     Route: 042
     Dates: start: 20210712
  19. LORAZEPAM [Concomitant]
     Active Substance: LORAZEPAM
     Indication: Product used for unknown indication
     Dosage: 1 MILLIGRAM, AS NECESSARY
     Route: 048
     Dates: start: 20210510
  20. ENOXAPARIN SODIUM [Concomitant]
     Active Substance: ENOXAPARIN SODIUM
     Indication: Product used for unknown indication
     Dosage: 0.4 MILLILITER, ONCE A DAY (GIVEN FOR PROPHYLAXIS YES)
     Route: 058
     Dates: start: 20210630
  21. TIRAGOLUMAB [Concomitant]
     Active Substance: TIRAGOLUMAB
     Indication: Non-small cell lung cancer metastatic
     Dosage: UNK
     Route: 065
  22. TIRAGOLUMAB [Concomitant]
     Active Substance: TIRAGOLUMAB
     Dosage: 600 MILLIGRAM, EVERY 3 WEEK
     Route: 065
     Dates: start: 20210601
  23. Novalgin [Concomitant]
     Indication: Pain
     Dosage: 500 MILLIGRAM, FOUR TIMES/DAY
     Route: 048
     Dates: end: 20210630
  24. Novalgin [Concomitant]
     Dosage: 1 GRAM, FOUR TIMES/DAY
     Route: 048
     Dates: start: 20210701
  25. GRANISETRON HYDROCHLORIDE [Concomitant]
     Active Substance: GRANISETRON HYDROCHLORIDE
     Indication: Product used for unknown indication
     Dosage: 2 MILLIGRAM, AS NECESSARY
     Route: 048
     Dates: start: 20210622
  26. KONAKION [Concomitant]
     Active Substance: PHYTONADIONE
     Indication: Coagulopathy
     Dosage: GIVEN FOR PROPHYLAXIS YES, MEDICATION DOSE 10 OTHER, ONCE A DAY
     Route: 062
     Dates: start: 20210706
  27. MOVICOL [Concomitant]
     Active Substance: POLYETHYLENE GLYCOL 3350\POTASSIUM CHLORIDE\SODIUM BICARBONATE\SODIUM CHLORIDE
     Indication: Constipation
     Dosage: 13.8 GRAM
     Route: 048
     Dates: start: 20210510
  28. MOVICOL [Concomitant]
     Active Substance: POLYETHYLENE GLYCOL 3350\POTASSIUM CHLORIDE\SODIUM BICARBONATE\SODIUM CHLORIDE
     Dosage: 13.8 GRAM, EVERY OTHER DAY
     Route: 048
     Dates: start: 20210510
  29. SPIRONOLACTONE [Concomitant]
     Active Substance: SPIRONOLACTONE
     Indication: Oedema
     Dosage: 50 MILLIGRAM, ONCE A DAY
     Route: 048
     Dates: start: 20210420, end: 20210630
  30. METAMIZOL [Concomitant]
     Active Substance: METAMIZOLE SODIUM
     Indication: Product used for unknown indication
     Dosage: 500 MILLIGRAM, 3 TIMES A DAY
     Route: 048
     Dates: start: 20210510
  31. AKYNZEO [Concomitant]
     Indication: Product used for unknown indication
     Dosage: 300 MILLIGRAM, AS NECESSARY
     Route: 048
     Dates: start: 20210601, end: 20210601
  32. AKYNZEO [Concomitant]
     Dosage: 300 MILLIGRAM, AS NECESSARY
     Route: 048
     Dates: start: 20210622, end: 20210622
  33. METOCLOPRAMIDE [Concomitant]
     Active Substance: METOCLOPRAMIDE
     Indication: Nausea
     Dosage: 10 MILLIGRAM, AS NECESSARY
     Route: 048
     Dates: start: 20210510
  34. CLOTRIMAZOLE [Concomitant]
     Active Substance: CLOTRIMAZOLE
     Indication: Product used for unknown indication
     Dosage: UNK UNK, TWO TIMES A DAY
     Route: 060
     Dates: start: 20210703
  35. FOLIC ACID [Concomitant]
     Active Substance: FOLIC ACID
     Indication: Product used for unknown indication
     Dosage: 0.4 GRAM, ONCE A DAY
     Route: 048
     Dates: start: 20210526
  36. PANTOPRAZOLE [Concomitant]
     Active Substance: PANTOPRAZOLE
     Indication: Product used for unknown indication
     Dosage: 40 MILLIGRAM, ONCE A DAY
     Route: 048
  37. TORSEMIDE [Concomitant]
     Active Substance: TORSEMIDE
     Indication: Oedema
     Dosage: 10 MILLIGRAM, ONCE A DAY
     Route: 048
     Dates: start: 20210420
  38. MIRTAZAPINE [Concomitant]
     Active Substance: MIRTAZAPINE
     Indication: Product used for unknown indication
     Dosage: 15 MILLIGRAM, ONCE A DAY (GIVEN FOR PROPHYLAXIS YES)
     Route: 048
     Dates: start: 20210409
  39. MIRTAZAPINE [Concomitant]
     Active Substance: MIRTAZAPINE
     Dosage: 15 MILLIGRAM, ONCE A DAY
     Route: 048
     Dates: start: 20210510
  40. MORPHINE SULFATE [Concomitant]
     Active Substance: MORPHINE SULFATE
     Indication: Pain
     Dosage: 1 MILLIGRAM, ONCE A DAY
     Route: 065
     Dates: start: 20210702
  41. CALCIUM [Concomitant]
     Active Substance: CALCIUM
     Indication: Calcium deficiency
     Dosage: 1000 MILLIGRAM, ONCE A DAY
     Route: 048
     Dates: start: 20210510
  42. ZOFRAN [Concomitant]
     Active Substance: ONDANSETRON HYDROCHLORIDE
     Indication: Nausea
     Dosage: 4 MILLIGRAM, AS NECESSARY
     Route: 048
     Dates: start: 20210510

REACTIONS (2)
  - Gastroenteritis Escherichia coli [Recovered/Resolved]
  - Vomiting [Recovered/Resolved]

NARRATIVE: CASE EVENT DATE: 20210610
